FAERS Safety Report 5518457-1 (Version None)
Quarter: 2007Q4

REPORT INFORMATION
  Report Type: 
  Country: None (occurrence: None)
  Receive Date: 20071115
  Receipt Date: 20071107
  Transmission Date: 20080405
  Serious: Yes (Death, Hospitalization, Other)
  Sender: FDA-Public Use
  Company Number: US-PFIZER INC-2006122308

PATIENT
  Sex: Female
  Weight: 68 kg

DRUGS (4)
  1. CELEBREX [Suspect]
     Indication: PAIN
     Dates: start: 19990101, end: 20040624
  2. BEXTRA [Suspect]
     Dates: start: 20011101, end: 20040624
  3. VIOXX [Suspect]
     Indication: PAIN
     Route: 048
     Dates: start: 19990520, end: 20040624
  4. PLAVIX [Concomitant]
     Indication: CARDIAC DISORDER
     Dates: start: 19990502, end: 20040624

REACTIONS (2)
  - CARDIAC FAILURE CONGESTIVE [None]
  - MYOCARDIAL INFARCTION [None]
